FAERS Safety Report 7406439-4 (Version None)
Quarter: 2011Q2

REPORT INFORMATION
  Report Type: 
  Country: None (occurrence: None)
  Receive Date: 20110411
  Receipt Date: 20110405
  Transmission Date: 20111010
  Serious: Yes (Death)
  Sender: FDA-Public Use
  Company Number: PHHY2011US28443

PATIENT
  Sex: Female
  Weight: 28.571 kg

DRUGS (1)
  1. EXJADE [Suspect]
     Indication: IRON METABOLISM DISORDER
     Dosage: 300 MG, BID (2 TIMES QD)
     Route: 048
     Dates: start: 20100211

REACTIONS (1)
  - DEATH [None]
